FAERS Safety Report 8004647-5 (Version None)
Quarter: 2011Q4

REPORT INFORMATION
  Report Type: 
  Country: None (occurrence: None)
  Receive Date: 20111223
  Receipt Date: 20111214
  Transmission Date: 20120403
  Serious: Yes (Other)
  Sender: FDA-Public Use
  Company Number: US-JNJFOC-20110103287

PATIENT
  Sex: Female
  Weight: 58.97 kg

DRUGS (11)
  1. REMICADE [Suspect]
     Route: 042
     Dates: start: 20110501
  2. REMICADE [Suspect]
     Indication: RHEUMATOID ARTHRITIS
     Route: 042
     Dates: start: 20100201
  3. REMICADE [Suspect]
     Route: 042
     Dates: start: 20101213
  4. DICLOFENAC SODIUM [Concomitant]
     Indication: MUSCULOSKELETAL DISCOMFORT
     Route: 048
  5. CALCITONIN SALMON [Concomitant]
     Indication: BONE DENSITY DECREASED
     Route: 045
     Dates: start: 20110701
  6. REMICADE [Suspect]
     Route: 042
     Dates: start: 20110203
  7. METHOTREXATE [Concomitant]
     Indication: RHEUMATOID ARTHRITIS
     Route: 058
  8. RESTASIS [Concomitant]
     Indication: DRY EYE
     Route: 047
     Dates: start: 20080101
  9. ALENDRONATE SODIUM [Concomitant]
     Route: 048
  10. VOLTAREN [Concomitant]
     Indication: PAIN
     Route: 048
  11. METHOTREXATE [Concomitant]
     Route: 048
     Dates: start: 20110201

REACTIONS (7)
  - RHEUMATOID ARTHRITIS [None]
  - PAIN IN EXTREMITY [None]
  - VASCULITIS [None]
  - HERPES ZOSTER [None]
  - IMPAIRED GASTRIC EMPTYING [None]
  - BLOOD BLISTER [None]
  - ERYTHEMA [None]
